FAERS Safety Report 5352254-5 (Version None)
Quarter: 2007Q2

REPORT INFORMATION
  Report Type: 
  Country: None (occurrence: None)
  Receive Date: 20070607
  Receipt Date: 20070530
  Transmission Date: 20071010
  Serious: Yes (Death)
  Sender: FDA-Public Use
  Company Number: 163-21880-07031098

PATIENT
  Age: 55 Year
  Sex: Male

DRUGS (7)
  1. REVLIMID [Suspect]
     Indication: PLASMABLASTIC LYMPHOMA
     Dosage: 25 MG, 1 IN 1 D, ORAL
     Route: 048
     Dates: start: 20070117, end: 20070315
  2. COMBIVIR [Concomitant]
  3. VIRAMUNE [Concomitant]
  4. OMEPRAZOLE [Concomitant]
  5. EFFEXOR [Concomitant]
  6. LYRICA [Concomitant]
  7. PROPRANOLOL [Concomitant]

REACTIONS (3)
  - DISEASE PROGRESSION [None]
  - MENTAL STATUS CHANGES [None]
  - RENAL FAILURE ACUTE [None]
